FAERS Safety Report 5166479-5 (Version None)
Quarter: 2006Q4

REPORT INFORMATION
  Report Type: 
  Country: None (occurrence: None)
  Receive Date: 20061207
  Receipt Date: 20061127
  Transmission Date: 20070319
  Serious: Yes (Other)
  Sender: FDA-Public Use
  Company Number: PHNU2006DE03973

PATIENT
  Age: 69 Year
  Sex: Female

DRUGS (1)
  1. EXJADE [Suspect]
     Dosage: 1000 MG/DAY
     Route: 048
     Dates: start: 20061025, end: 20061103

REACTIONS (1)
  - HAEMOGLOBIN DECREASED [None]
